FAERS Safety Report 7590898-0 (Version None)
Quarter: 2011Q3

REPORT INFORMATION
  Report Type: 
  Country: None (occurrence: None)
  Receive Date: 20110705
  Receipt Date: 20110627
  Transmission Date: 20111222
  Serious: Yes (Hospitalization)
  Sender: FDA-Public Use
  Company Number: PHHY2011NL27691

PATIENT
  Sex: Male

DRUGS (12)
  1. ZOMETA [Suspect]
     Dosage: 4 MG/ 5ML, 1X PER 28 DAYS
     Dates: start: 20110404
  2. TAMSULOSIN HCL [Concomitant]
  3. ZOMETA [Suspect]
     Dosage: 4 MG/ 5ML, 1X PER 28 DAYS
     Dates: start: 20110304
  4. ZOLADEX [Concomitant]
  5. ZOMETA [Suspect]
     Dates: start: 20110530
  6. OMEPRAZOLE [Concomitant]
  7. FENTANYL [Concomitant]
     Dosage: 62 UG, UNK
  8. ZOMETA [Suspect]
     Indication: PROSTATE CANCER METASTATIC
     Dosage: 4 MG/ 5ML, 1X PER 28 DAYS
     Dates: start: 20101018
  9. PREDNISONE [Concomitant]
  10. ZOMETA [Suspect]
     Dates: start: 20110428
  11. CITALOPRAM [Concomitant]
  12. DICLOFENAC SODIUM [Concomitant]

REACTIONS (3)
  - BONE PAIN [None]
  - PAIN [None]
  - CENTRAL NERVOUS SYSTEM LESION [None]
